FAERS Safety Report 6055326-5 (Version None)
Quarter: 2009Q1

REPORT INFORMATION
  Report Type: 
  Country: None (occurrence: None)
  Receive Date: 20090128
  Receipt Date: 20090123
  Transmission Date: 20090719
  Serious: Yes (Disabling)
  Sender: FDA-Public Use
  Company Number: JP-ASTRAZENECA-2008AP09812

PATIENT
  Age: 23742 Day
  Sex: Male
  Weight: 75 kg

DRUGS (9)
  1. CRESTOR [Suspect]
     Indication: TYPE IIA HYPERLIPIDAEMIA
     Route: 048
     Dates: start: 20071121, end: 20081125
  2. LOXONIN [Suspect]
     Indication: BACK PAIN
     Route: 048
     Dates: start: 20081010, end: 20081125
  3. ITOROL [Concomitant]
     Indication: ANGINA PECTORIS
     Route: 048
     Dates: start: 20040415
  4. ASPIRIN [Concomitant]
     Indication: ANGINA PECTORIS
     Route: 048
     Dates: start: 20040415
  5. HERBESSER R [Concomitant]
     Indication: ANGINA PECTORIS
     Route: 048
     Dates: start: 20040415
  6. DIOVAN [Concomitant]
     Indication: HYPERTENSION
     Route: 048
     Dates: start: 20040721, end: 20081125
  7. WARFARIN SODIUM [Concomitant]
     Indication: CORONARY BYPASS THROMBOSIS
     Route: 048
     Dates: start: 20040721, end: 20081125
  8. EPADEL S [Concomitant]
     Indication: TYPE IIA HYPERLIPIDAEMIA
     Route: 048
     Dates: start: 20040721
  9. PLAVIX [Concomitant]
     Indication: CEREBRAL INFARCTION
     Route: 048
     Dates: start: 20080501

REACTIONS (1)
  - RENAL FAILURE ACUTE [None]
